FAERS Safety Report 7283364-3 (Version None)
Quarter: 2011Q1

REPORT INFORMATION
  Report Type: 
  Country: None (occurrence: None)
  Receive Date: 20110209
  Receipt Date: 20101109
  Transmission Date: 20110831
  Serious: No
  Sender: FDA-Public Use
  Company Number: A0816330A

PATIENT
  Age: 57 Year
  Sex: Female

DRUGS (2)
  1. PAXIL [Suspect]
  2. PAROXETINE HCL [Suspect]
     Route: 065

REACTIONS (3)
  - SOMNOLENCE [None]
  - STRESS [None]
  - DRUG INEFFECTIVE [None]
